FAERS Safety Report 7525498-1 (Version None)
Quarter: 2011Q2

REPORT INFORMATION
  Report Type: 
  Country: None (occurrence: None)
  Receive Date: 20110606
  Receipt Date: 20110530
  Transmission Date: 20111010
  Serious: Yes (Death)
  Sender: FDA-Public Use
  Company Number: JP-ROCHE-780386

PATIENT
  Sex: Male

DRUGS (12)
  1. ACTEMRA [Suspect]
     Route: 041
     Dates: start: 20100205, end: 20100205
  2. ACTEMRA [Suspect]
     Indication: RHEUMATOID ARTHRITIS
     Route: 041
     Dates: start: 20091106, end: 20091106
  3. ACTEMRA [Suspect]
     Route: 041
     Dates: start: 20100305, end: 20100305
  4. ACTEMRA [Suspect]
     Route: 041
     Dates: start: 20100506
  5. RHEUMATREX [Concomitant]
     Route: 048
     Dates: start: 20091019, end: 20100107
  6. FOLIC ACID [Concomitant]
     Dosage: DOSAGE FORM: PERORAL AGENT
     Route: 048
     Dates: start: 20091204
  7. ACTEMRA [Suspect]
     Route: 041
     Dates: start: 20100108, end: 20100108
  8. RHEUMATREX [Concomitant]
     Dosage: NOTE: AMOUNT 2
     Route: 048
     Dates: start: 20100108, end: 20100505
  9. ACTEMRA [Suspect]
     Route: 041
     Dates: start: 20100401, end: 20100401
  10. RHEUMATREX [Concomitant]
     Route: 048
     Dates: start: 20100506
  11. ACTEMRA [Suspect]
     Route: 041
     Dates: start: 20091204, end: 20091204
  12. PREDNISOLONE [Concomitant]
     Route: 048

REACTIONS (1)
  - GASTRIC CANCER [None]
